FAERS Safety Report 10743269 (Version 1)
Quarter: 2015Q1

REPORT INFORMATION
  Report Type: Spontaneous
  Country: MX (occurrence: MX)
  Receive Date: 20150127
  Receipt Date: 20150127
  Transmission Date: 20150721
  Serious: Yes (Death, Other)
  Sender: FDA-Public Use
  Company Number: MX-B.I. PHARMACEUTICALS,INC./RIDGEFIELD-2015-BI-04080MX

PATIENT
  Sex: Female

DRUGS (1)
  1. MICARDIS [Suspect]
     Active Substance: TELMISARTAN
     Indication: PRODUCT USED FOR UNKNOWN INDICATION
     Route: 065

REACTIONS (17)
  - Dry mouth [Fatal]
  - Abdominal discomfort [Fatal]
  - Pruritus [Fatal]
  - Myalgia [Fatal]
  - Syncope [Fatal]
  - Hypotension [Fatal]
  - Abdominal distension [Fatal]
  - Hyperhidrosis [Fatal]
  - Chest pain [Fatal]
  - Acute kidney injury [Fatal]
  - Blood potassium increased [Fatal]
  - Diarrhoea [Fatal]
  - Renal impairment [Fatal]
  - Vertigo [Fatal]
  - Dyspnoea [Fatal]
  - Abdominal pain [Fatal]
  - Insomnia [Fatal]
